FAERS Safety Report 18639993 (Version 1)
Quarter: 2020Q4

REPORT INFORMATION
  Report Type: Spontaneous
  Country: US (occurrence: US)
  Receive Date: 20201220
  Receipt Date: 20201220
  Transmission Date: 20210114
  Serious: No
  Sender: FDA-Public Use
  Company Number: US-PACIRA-202000291

PATIENT
  Sex: Male

DRUGS (1)
  1. EXPAREL [Suspect]
     Active Substance: BUPIVACAINE
     Indication: PRODUCT USED FOR UNKNOWN INDICATION
     Dosage: UNKNOWN
     Route: 047

REACTIONS (3)
  - Eye irritation [Recovered/Resolved]
  - Accidental exposure to product [Recovered/Resolved]
  - Corneal abrasion [Recovered/Resolved]

NARRATIVE: CASE EVENT DATE: 20200709
